FAERS Safety Report 12726978 (Version 1)
Quarter: 2016Q3

REPORT INFORMATION
  Report Type: Report from Study
  Country: US (occurrence: US)
  Receive Date: 20160909
  Receipt Date: 20160909
  Transmission Date: 20161109
  Serious: Yes (Hospitalization)
  Sender: FDA-Public Use
  Company Number: US-BIOGEN-2016BI00287852

PATIENT
  Age: 49 Year
  Sex: Male

DRUGS (1)
  1. AVONEX [Suspect]
     Active Substance: INTERFERON BETA-1A
     Indication: MULTIPLE SCLEROSIS
     Route: 030
     Dates: start: 19990701

REACTIONS (6)
  - Neoplasm malignant [Recovered/Resolved]
  - Pyrexia [Recovered/Resolved]
  - Infection [Recovered/Resolved]
  - Colitis [Recovered/Resolved]
  - Weight decreased [Recovered/Resolved]
  - Encephalitis [Recovered/Resolved]

NARRATIVE: CASE EVENT DATE: 20150601
